FAERS Safety Report 10088829 (Version 2)
Quarter: 2014Q2

REPORT INFORMATION
  Report Type: Spontaneous
  Country: JP (occurrence: JP)
  Receive Date: 20140421
  Receipt Date: 20140430
  Transmission Date: 20141212
  Serious: No
  Sender: FDA-Public Use
  Company Number: JP-JNJFOC-20140407188

PATIENT
  Age: 87 Year
  Sex: Female

DRUGS (2)
  1. DUROTEP MT [Suspect]
     Indication: PAIN
     Route: 062
  2. DUROTEP MT [Suspect]
     Indication: PAIN
     Route: 062

REACTIONS (1)
  - Wrong technique in drug usage process [Unknown]
